FAERS Safety Report 4972089-2 (Version None)
Quarter: 2006Q2

REPORT INFORMATION
  Report Type: 
  Country: None (occurrence: None)
  Receive Date: 20060412
  Receipt Date: 20060412
  Transmission Date: 20061013
  Serious: Yes (Life-Threatening, Hospitalization)
  Sender: FDA-Public Use
  Company Number: None

PATIENT
  Age: 16 Year
  Sex: Male
  Weight: 56.6996 kg

DRUGS (2)
  1. ADVAIR DISKUS 100/50 [Suspect]
     Indication: ASTHMA
     Dosage: 1 RESPULE TWICE DAILY INHAL
     Route: 055
     Dates: start: 20060126, end: 20060406
  2. FLONASE [Suspect]
     Indication: MULTIPLE ALLERGIES
     Dosage: 1 SQUIRT EACH NOSTRIL ONCE DAILY NASAL
     Route: 045
     Dates: start: 20060126, end: 20060406

REACTIONS (2)
  - ABNORMAL BEHAVIOUR [None]
  - SUICIDE ATTEMPT [None]
